FAERS Safety Report 8541613-5 (Version None)
Quarter: 2012Q3

REPORT INFORMATION
  Report Type: 
  Country: None (occurrence: None)
  Receive Date: 20120726
  Receipt Date: 20120723
  Transmission Date: 20120928
  Serious: Yes (Hospitalization, Other)
  Sender: FDA-Public Use
  Company Number: US-ROCHE-1088172

PATIENT
  Sex: Female
  Weight: 101.24 kg

DRUGS (31)
  1. RANIBIZUMAB [Suspect]
     Route: 050
     Dates: start: 20101207
  2. RANIBIZUMAB [Suspect]
     Route: 050
     Dates: start: 20110407
  3. RANIBIZUMAB [Suspect]
     Route: 050
     Dates: start: 20110610
  4. RANIBIZUMAB [Suspect]
     Route: 050
     Dates: start: 20110712
  5. RANIBIZUMAB [Suspect]
     Route: 050
     Dates: start: 20120313
  6. NEURONTIN [Concomitant]
     Route: 048
  7. RANIBIZUMAB [Suspect]
     Indication: DIABETES MELLITUS
     Route: 050
     Dates: start: 20101005
  8. RANIBIZUMAB [Suspect]
     Route: 050
     Dates: start: 20101103
  9. RANIBIZUMAB [Suspect]
     Route: 050
     Dates: start: 20110513
  10. RANIBIZUMAB [Suspect]
     Route: 050
     Dates: start: 20110913
  11. RANIBIZUMAB [Suspect]
     Route: 050
     Dates: start: 20111213
  12. RANIBIZUMAB [Suspect]
     Route: 050
     Dates: start: 20120410
  13. LASIX [Concomitant]
     Route: 048
  14. RANIBIZUMAB [Suspect]
     Route: 050
     Dates: start: 20110131
  15. RANIBIZUMAB [Suspect]
     Route: 050
     Dates: start: 20110809
  16. RANIBIZUMAB [Suspect]
     Route: 050
     Dates: start: 20120209
  17. RANIBIZUMAB [Suspect]
     Indication: MACULAR OEDEMA
     Route: 050
     Dates: start: 20100908
  18. COREG CR [Concomitant]
     Route: 048
  19. ASPIRIN [Concomitant]
  20. NIFEDIPINE [Concomitant]
  21. RANIBIZUMAB [Suspect]
     Route: 050
     Dates: start: 20120612
  22. HYDRALAZINE HCL [Concomitant]
     Route: 048
  23. HUMULIN INSULIN [Concomitant]
  24. RANIBIZUMAB [Suspect]
     Route: 050
     Dates: start: 20111011
  25. RANIBIZUMAB [Suspect]
     Route: 050
     Dates: start: 20120508
  26. NORVASC [Concomitant]
     Route: 048
  27. RANIBIZUMAB [Suspect]
     Route: 050
     Dates: start: 20110104
  28. CLONIDINE [Concomitant]
  29. RANIBIZUMAB [Suspect]
     Route: 050
     Dates: start: 20110304
  30. RANIBIZUMAB [Suspect]
     Route: 050
     Dates: start: 20111108
  31. ATORVASTATIN [Concomitant]

REACTIONS (1)
  - CEREBROVASCULAR ACCIDENT [None]
